FAERS Safety Report 15689736 (Version 10)
Quarter: 2020Q3

REPORT INFORMATION
  Report Type: Spontaneous
  Country: US (occurrence: US)
  Receive Date: 20181205
  Receipt Date: 20200710
  Transmission Date: 20201102
  Serious: Yes (Hospitalization)
  Sender: FDA-Public Use
  Company Number: US-ACTELION-A-NJ2018-182441

PATIENT
  Age: 43 Year
  Sex: Female
  Weight: 74.83 kg

DRUGS (6)
  1. OPSUMIT [Suspect]
     Active Substance: MACITENTAN
     Indication: PULMONARY ARTERIAL HYPERTENSION
     Dosage: 10 MG, QD
     Route: 048
  2. COUMADIN [Concomitant]
     Active Substance: WARFARIN SODIUM
  3. ELIQUIS [Concomitant]
     Active Substance: APIXABAN
  4. EPOPROSTENOL TEVA [Concomitant]
     Active Substance: EPOPROSTENOL SODIUM
  5. REMODULIN [Suspect]
     Active Substance: TREPROSTINIL
     Indication: PRODUCT USED FOR UNKNOWN INDICATION
     Dosage: 43 NG
     Route: 065
  6. ADEMPAS [Concomitant]
     Active Substance: RIOCIGUAT

REACTIONS (13)
  - Dyspnoea [Unknown]
  - Complication associated with device [Unknown]
  - Asthma [Unknown]
  - Device breakage [Unknown]
  - Diarrhoea [Unknown]
  - Headache [Unknown]
  - Vascular device infection [Unknown]
  - Pyrexia [Unknown]
  - Catheter management [Unknown]
  - Cough [Unknown]
  - Wheezing [Unknown]
  - Device leakage [Unknown]
  - Emergency care [Unknown]

NARRATIVE: CASE EVENT DATE: 20191028
